FAERS Safety Report 7014111-8 (Version None)
Quarter: 2010Q3

REPORT INFORMATION
  Report Type: 
  Country: None (occurrence: None)
  Receive Date: 20100927
  Receipt Date: 20100917
  Transmission Date: 20110219
  Serious: Yes (Hospitalization)
  Sender: FDA-Public Use
  Company Number: US-US-EMD SERONO, INC.-7004687

PATIENT
  Sex: Female
  Weight: 90 kg

DRUGS (8)
  1. REBIF [Suspect]
     Indication: RELAPSING-REMITTING MULTIPLE SCLEROSIS
     Route: 058
     Dates: start: 20090120, end: 20100503
  2. REBIF [Suspect]
     Route: 058
     Dates: start: 20100101
  3. NOVANTRONE [Suspect]
     Indication: RELAPSING-REMITTING MULTIPLE SCLEROSIS
     Dates: start: 20090120
  4. SOLU-MEDROL [Concomitant]
  5. CLONIDINE [Concomitant]
     Indication: HYPERTENSION
  6. BENAZEPRIL HYDROCHLORIDE [Concomitant]
     Indication: HYPERTENSION
  7. NEURONTIN [Concomitant]
     Indication: CONVULSION
  8. VALIUM [Concomitant]
     Indication: CONVULSION

REACTIONS (7)
  - BLADDER DISORDER [None]
  - HYPERTENSION [None]
  - INFLUENZA LIKE ILLNESS [None]
  - INJECTION SITE ERYTHEMA [None]
  - MULTIPLE SCLEROSIS RELAPSE [None]
  - MYALGIA [None]
  - MYOCLONUS [None]
